FAERS Safety Report 21717657 (Version 1)
Quarter: 2022Q4

REPORT INFORMATION
  Report Type: Spontaneous
  Country: US (occurrence: US)
  Receive Date: 20221212
  Receipt Date: 20221212
  Transmission Date: 20230113
  Serious: Yes (Other)
  Sender: FDA-Public Use
  Company Number: US-TEVA-2022-US-2831928

PATIENT
  Sex: Male

DRUGS (4)
  1. OXYBUTYNIN [Suspect]
     Active Substance: OXYBUTYNIN
     Indication: Pollakiuria
     Dosage: UNK
     Dates: start: 202111
  2. OCREVUS [Concomitant]
     Active Substance: OCRELIZUMAB
     Indication: Primary progressive multiple sclerosis
     Dosage: UNK
     Dates: start: 2021
  3. BACLOFEN [Concomitant]
     Active Substance: BACLOFEN
     Indication: Product used for unknown indication
  4. SYNTHROID [Concomitant]
     Active Substance: LEVOTHYROXINE SODIUM
     Indication: Product used for unknown indication

REACTIONS (8)
  - Urinary retention [Recovered/Resolved]
  - Micturition frequency decreased [Recovered/Resolved]
  - Pollakiuria [Recovered/Resolved]
  - Initial insomnia [Unknown]
  - Gait disturbance [Unknown]
  - Arthropathy [Unknown]
  - Joint stiffness [Unknown]
  - Urethral stricture traumatic [Recovered/Resolved]

NARRATIVE: CASE EVENT DATE: 20211108
